FAERS Safety Report 15108253 (Version 4)
Quarter: 2019Q1

REPORT INFORMATION
  Report Type: Report from Study
  Country: CA (occurrence: CA)
  Receive Date: 20180705
  Receipt Date: 20190326
  Transmission Date: 20190417
  Serious: Yes (Other)
  Sender: FDA-Public Use
  Company Number: CA-ROCHE-2064589

PATIENT
  Age: 36 Year
  Sex: Female

DRUGS (7)
  1. EFFEXOR [Concomitant]
     Active Substance: VENLAFAXINE HYDROCHLORIDE
     Dosage: DOSAGE 2
     Route: 065
  2. OCREVUS [Suspect]
     Active Substance: OCRELIZUMAB
     Indication: RELAPSING-REMITTING MULTIPLE SCLEROSIS
     Dosage: IN 250 ML NACL.9%?300MG DAY 0 AND DAY 14, THEN 600MG Q 6 MONTHS?SUBSEQUENT INFUSION, ON 24/JUL/2018,
     Route: 042
     Dates: start: 20180125
  3. INSULIN [Concomitant]
     Active Substance: INSULIN NOS
     Indication: DIABETES MELLITUS
     Route: 065
  4. EFFEXOR [Concomitant]
     Active Substance: VENLAFAXINE HYDROCHLORIDE
     Route: 065
  5. MIDANE [Concomitant]
     Indication: ENDOMETRIOSIS
     Route: 065
  6. SYNTHROID [Concomitant]
     Active Substance: LEVOTHYROXINE SODIUM
     Route: 065
  7. NACL .9% [Concomitant]
     Route: 042

REACTIONS (14)
  - Nausea [Not Recovered/Not Resolved]
  - Tremor [Recovering/Resolving]
  - Hypoglycaemia [Recovering/Resolving]
  - Blood glucose increased [Recovering/Resolving]
  - Blood glucose abnormal [Unknown]
  - Chest discomfort [Recovered/Resolved]
  - Infusion related reaction [Recovered/Resolved]
  - Vertigo [Recovering/Resolving]
  - Pruritus [Unknown]
  - Chills [Not Recovered/Not Resolved]
  - Fatigue [Recovering/Resolving]
  - Abdominal pain [Not Recovered/Not Resolved]
  - Dizziness [Recovering/Resolving]
  - Infusion related reaction [Recovering/Resolving]

NARRATIVE: CASE EVENT DATE: 20180125
